FAERS Safety Report 7421950-8 (Version None)
Quarter: 2011Q2

REPORT INFORMATION
  Report Type: 
  Country: None (occurrence: None)
  Receive Date: 20110418
  Receipt Date: 20110411
  Transmission Date: 20111010
  Serious: Yes (Hospitalization)
  Sender: FDA-Public Use
  Company Number: US-ELI_LILLY_AND_COMPANY-US201104003763

PATIENT
  Sex: Female

DRUGS (3)
  1. HUMALOG MIX 50/50 [Suspect]
     Indication: DIABETES MELLITUS
     Dosage: 50 U, BID
     Dates: start: 20110101
  2. LEVEMIR [Concomitant]
     Indication: DIABETES MELLITUS
     Dosage: UNK
     Dates: start: 20110101
  3. NOVOLOG [Concomitant]
     Indication: DIABETES MELLITUS
     Dosage: UNK
     Dates: start: 20110101

REACTIONS (8)
  - DIZZINESS [None]
  - DRUG DOSE OMISSION [None]
  - CYSTITIS [None]
  - GAIT DISTURBANCE [None]
  - GLAUCOMA [None]
  - NEUROPATHY PERIPHERAL [None]
  - HEADACHE [None]
  - BACK DISORDER [None]
